FAERS Safety Report 7885306-6 (Version None)
Quarter: 2011Q4

REPORT INFORMATION
  Report Type: 
  Country: None (occurrence: None)
  Receive Date: 20111102
  Receipt Date: 20111101
  Transmission Date: 20120403
  Serious: Yes (Disabling, Other)
  Sender: FDA-Public Use
  Company Number: US-PFIZER INC-2011194800

PATIENT
  Sex: Female
  Weight: 52.154 kg

DRUGS (4)
  1. EFFEXOR XR [Suspect]
     Indication: DEPRESSION
     Dosage: 225 MG, 1X/DAY
  2. EFFEXOR [Suspect]
     Dosage: UNK
  3. EFFEXOR XR [Suspect]
     Indication: SUICIDE ATTEMPT
     Dosage: 75 MG, 1X/DAY
     Dates: start: 20090401, end: 20090101
  4. TYLENOL PM [Concomitant]
     Dosage: UNK

REACTIONS (17)
  - EMOTIONAL DISORDER [None]
  - DRUG INEFFECTIVE [None]
  - FEELING ABNORMAL [None]
  - PERSONALITY CHANGE [None]
  - AGGRESSION [None]
  - DEPRESSION [None]
  - PANIC ATTACK [None]
  - WITHDRAWAL SYNDROME [None]
  - THINKING ABNORMAL [None]
  - NAUSEA [None]
  - SUICIDE ATTEMPT [None]
  - ACTIVITIES OF DAILY LIVING IMPAIRED [None]
  - CHILD NEGLECT [None]
  - SUICIDAL IDEATION [None]
  - ABNORMAL BEHAVIOUR [None]
  - NERVOUSNESS [None]
  - SOCIAL PHOBIA [None]
